FAERS Safety Report 15668168 (Version 5)
Quarter: 2019Q2

REPORT INFORMATION
  Report Type: Report from Study
  Country: None (occurrence: BE)
  Receive Date: 20181129
  Receipt Date: 20190409
  Transmission Date: 20190711
  Serious: Yes (Hospitalization)
  Sender: FDA-Public Use
  Company Number: BE-ABBVIE-18S-013-2568636-00

PATIENT
  Sex: Male

DRUGS (11)
  1. DUODOPA [Suspect]
     Active Substance: CARBIDOPA\LEVODOPA
     Dosage: MD=8.5ML??CD=3.8ML/HR DURING 16HRS ??ED=1.5ML
     Route: 050
     Dates: start: 20140514, end: 20180818
  2. ASAFLOW [Concomitant]
     Active Substance: ASPIRIN
     Indication: PRODUCT USED FOR UNKNOWN INDICATION
  3. DUODOPA [Suspect]
     Active Substance: CARBIDOPA\LEVODOPA
     Dosage: DOSES CONTINUOUSLY MONITORED AND ADAPTED
     Route: 050
     Dates: start: 20140818, end: 20180926
  4. DUODOPA [Suspect]
     Active Substance: CARBIDOPA\LEVODOPA
     Dosage: MD=3ML; CD=3ML (AM) - 3.2ML (PM)/HR DURING 16HRS; ED=2ML?ND=1.8ML/HR DURING 8HRS
     Route: 050
     Dates: start: 20181130
  5. L-THYROXINE [Concomitant]
     Active Substance: LEVOTHYROXINE
     Indication: PRODUCT USED FOR UNKNOWN INDICATION
  6. PANTOMED [Concomitant]
     Indication: PRODUCT USED FOR UNKNOWN INDICATION
  7. DUODOPA [Suspect]
     Active Substance: CARBIDOPA\LEVODOPA
     Indication: PARKINSON^S DISEASE
     Dosage: DOSES UNKNOWN
     Route: 050
     Dates: start: 20140512, end: 20140514
  8. KREDEX [Concomitant]
     Active Substance: CARVEDILOL
     Indication: PRODUCT USED FOR UNKNOWN INDICATION
  9. STALEVO [Concomitant]
     Active Substance: CARBIDOPA\ENTACAPONE\LEVODOPA
     Indication: PARKINSON^S DISEASE
     Dosage: STALEVO 150?FORM STRENGTH: 150MG/37.5MG/200MG
     Route: 048
  10. STALEVO [Concomitant]
     Active Substance: CARBIDOPA\ENTACAPONE\LEVODOPA
     Dosage: FORM STRENGTH: 150MG/37.5MG/200MG. RESCUE MEDICATION.
  11. DUODOPA [Suspect]
     Active Substance: CARBIDOPA\LEVODOPA
     Dosage: MD=3ML, CD=3ML/HR  UNTIL NOON, 3.2 ML/HR UNTIL THE EVENING, ED=2ML, ND=1.8ML/HR FOR 8HRS
     Route: 050
     Dates: start: 20180926, end: 2018

REACTIONS (10)
  - Volvulus [Recovered/Resolved]
  - Pneumonia aspiration [Recovered/Resolved]
  - Decreased appetite [Recovered/Resolved]
  - Faecal vomiting [Recovered/Resolved]
  - Vomiting [Recovered/Resolved]
  - Stomach mass [Recovered/Resolved]
  - General physical health deterioration [Recovered/Resolved]
  - Dyskinesia [Recovered/Resolved]
  - Stoma site discharge [Recovered/Resolved]
  - Nausea [Recovered/Resolved]

NARRATIVE: CASE EVENT DATE: 2018
